FAERS Safety Report 9416471 (Version 1)
Quarter: 2013Q3

REPORT INFORMATION
  Report Type: Spontaneous
  Country: US (occurrence: None)
  Receive Date: 20130719
  Receipt Date: 20130719
  Transmission Date: 20140515
  Serious: Yes (Other)
  Sender: FDA-Public Use
  Company Number: 2013P1011971

PATIENT
  Age: 24 Year
  Sex: Male

DRUGS (7)
  1. FENTANYL [Suspect]
     Indication: INDUCTION OF ANAESTHESIA
     Route: 042
  2. MEPERIDINE [Suspect]
     Indication: ANALGESIC THERAPY
     Route: 030
  3. FLUOXETINE [Suspect]
     Indication: DEPRESSION
  4. MIDAZOLAM [Concomitant]
  5. PROPOFOL [Concomitant]
  6. SEVOFLORANE [Concomitant]
  7. MORPHINE [Concomitant]

REACTIONS (6)
  - Headache [None]
  - Dyspnoea [None]
  - Unresponsive to stimuli [None]
  - Serotonin syndrome [None]
  - Drug interaction [None]
  - Toxicity to various agents [None]
